FAERS Safety Report 7071905-0 (Version None)
Quarter: 2010Q4

REPORT INFORMATION
  Report Type: 
  Country: None (occurrence: None)
  Receive Date: 20101029
  Receipt Date: 20091103
  Transmission Date: 20110411
  Serious: No
  Sender: FDA-Public Use
  Company Number: A0814742A

PATIENT
  Age: 79 Year
  Sex: Male

DRUGS (16)
  1. ADVAIR DISKUS 100/50 [Suspect]
     Indication: CHRONIC OBSTRUCTIVE PULMONARY DISEASE
     Dosage: 1PUFF TWICE PER DAY
     Route: 055
     Dates: start: 20091009
  2. ALLOPURINOL [Concomitant]
  3. ASPIRIN [Concomitant]
  4. SELOVITINE [Concomitant]
  5. POTASSIUM CHLORIDE [Concomitant]
  6. TOPROL-XL [Concomitant]
  7. TICAR [Concomitant]
  8. LISINOPRIL [Concomitant]
  9. INFANRIX [Concomitant]
  10. LYRICA [Concomitant]
  11. OMEPRAZOLE [Concomitant]
  12. FLOMAX [Concomitant]
  13. OXYBUTYNIN [Concomitant]
  14. PRAVASTATIN [Concomitant]
  15. FUROSEMIDE [Concomitant]
  16. FISH OIL [Concomitant]

REACTIONS (1)
  - DYSPHONIA [None]
